FAERS Safety Report 17075653 (Version 2)
Quarter: 2019Q4

REPORT INFORMATION
  Report Type: Spontaneous
  Country: US (occurrence: US)
  Receive Date: 20191126
  Receipt Date: 20191217
  Transmission Date: 20200122
  Serious: Yes (Other)
  Sender: FDA-Public Use
  Company Number: US-PFIZER INC-2019494758

PATIENT
  Age: 69 Year
  Sex: Female

DRUGS (2)
  1. IBRANCE [Suspect]
     Active Substance: PALBOCICLIB
     Indication: BREAST CANCER METASTATIC
  2. IBRANCE [Suspect]
     Active Substance: PALBOCICLIB
     Indication: BREAST CANCER FEMALE
     Dosage: 75 MG, CYCLIC (DAYS 1-14 OF 28 DAY)
     Route: 048
     Dates: start: 201902, end: 201911

REACTIONS (4)
  - Neoplasm progression [Unknown]
  - Peripheral swelling [Unknown]
  - Neutropenia [Unknown]
  - Muscle spasms [Unknown]
